FAERS Safety Report 21075099 (Version 1)
Quarter: 2022Q3

REPORT INFORMATION
  Report Type: Spontaneous
  Country: US (occurrence: None)
  Receive Date: 20220712
  Receipt Date: 20220712
  Transmission Date: 20221026
  Serious: No
  Sender: FDA-Public Use
  Company Number: None

PATIENT
  Sex: Female

DRUGS (1)
  1. OTEZLA [Suspect]
     Active Substance: APREMILAST
     Indication: Psoriasis
     Dosage: 10/20/30M  TWICE DAILY ORALLY? ?
     Route: 048
     Dates: start: 20220701

REACTIONS (6)
  - Headache [None]
  - Back pain [None]
  - Diarrhoea [None]
  - Vomiting [None]
  - Dizziness [None]
  - Palpitations [None]
